FAERS Safety Report 9323688 (Version 3)
Quarter: 2013Q2

REPORT INFORMATION
  Report Type: Report from Study
  Country: VN (occurrence: VN)
  Receive Date: 20130603
  Receipt Date: 20130613
  Transmission Date: 20140414
  Serious: Yes (Death, Hospitalization, Other)
  Sender: FDA-Public Use
  Company Number: PHHY2013VN055219

PATIENT
  Age: 46 Year
  Sex: Male
  Weight: 58 kg

DRUGS (3)
  1. GLIVEC [Suspect]
     Indication: CHRONIC MYELOID LEUKAEMIA
     Dosage: 400 MG, QD
     Route: 048
     Dates: start: 201209, end: 20130409
  2. CHEMOTHERAPEUTICS [Concomitant]
     Dosage: UNK UKN, UNK
  3. ANTIBIOTICS [Concomitant]
     Dosage: UNK UKN, UNK

REACTIONS (7)
  - Cerebral haemorrhage [Fatal]
  - General physical health deterioration [Fatal]
  - Platelet count decreased [Fatal]
  - Purpura [Fatal]
  - Chronic myeloid leukaemia transformation [Fatal]
  - Pyrexia [Unknown]
  - Full blood count decreased [Unknown]
